FAERS Safety Report 4785842-5 (Version None)
Quarter: 2005Q4

REPORT INFORMATION
  Report Type: 
  Country: None (occurrence: None)
  Receive Date: 20051003
  Receipt Date: 20050622
  Transmission Date: 20060501
  Serious: Yes (Hospitalization, Other)
  Sender: FDA-Public Use
  Company Number: US-MERCK-0506USA03320

PATIENT
  Age: 70 Year
  Sex: Male
  Weight: 97 kg

DRUGS (10)
  1. VIOXX [Suspect]
     Indication: ARTHRALGIA
     Route: 048
     Dates: start: 20030203, end: 20030512
  2. VIOXX [Suspect]
     Route: 048
     Dates: start: 20020801
  3. VIOXX [Suspect]
     Route: 048
     Dates: start: 20021004, end: 20021007
  4. GLUCOVANCE [Concomitant]
     Route: 065
  5. LIPITOR [Concomitant]
     Route: 065
  6. ASPIRIN [Concomitant]
     Route: 065
  7. CARDURA [Concomitant]
     Route: 065
  8. CITRUCEL [Concomitant]
     Route: 065
  9. ATENOLOL [Concomitant]
     Route: 065
  10. LASIX [Concomitant]
     Route: 065

REACTIONS (25)
  - AORTIC ANEURYSM [None]
  - BACK PAIN [None]
  - BASAL CELL CARCINOMA [None]
  - BLOOD GLUCOSE INCREASED [None]
  - CONDITION AGGRAVATED [None]
  - DEEP VEIN THROMBOSIS [None]
  - DYSGEUSIA [None]
  - EAR NEOPLASM [None]
  - ELECTROCARDIOGRAM T WAVE INVERSION [None]
  - FALL [None]
  - FEMORAL BRUIT [None]
  - HAEMATOCRIT DECREASED [None]
  - HYPERKALAEMIA [None]
  - HYPERTENSION [None]
  - HYPOTENSION [None]
  - INTERMITTENT CLAUDICATION [None]
  - INTERVERTEBRAL DISC PROTRUSION [None]
  - MYOCARDIAL INFARCTION [None]
  - NOCTURIA [None]
  - PERIPHERAL VASCULAR DISORDER [None]
  - RENAL FAILURE ACUTE [None]
  - RENAL FAILURE CHRONIC [None]
  - RENAL IMPAIRMENT [None]
  - SHOULDER PAIN [None]
  - XANTHELASMA [None]
